FAERS Safety Report 16310584 (Version 3)
Quarter: 2022Q4

REPORT INFORMATION
  Report Type: Spontaneous
  Country: US (occurrence: None)
  Receive Date: 20190514
  Receipt Date: 20221109
  Transmission Date: 20230112
  Serious: Yes (Death, Other)
  Sender: FDA-Public Use
  Company Number: 2019SE67490

PATIENT
  Age: 24648 Day
  Sex: Female
  Weight: 72.6 kg

DRUGS (66)
  1. NEXIUM [Suspect]
     Active Substance: ESOMEPRAZOLE MAGNESIUM
     Indication: Gastrooesophageal reflux disease
     Route: 048
     Dates: start: 200605, end: 200606
  2. NEXIUM [Suspect]
     Active Substance: ESOMEPRAZOLE MAGNESIUM
     Indication: Gastrooesophageal reflux disease
     Route: 048
     Dates: start: 2006, end: 2011
  3. NEXIUM [Suspect]
     Active Substance: ESOMEPRAZOLE MAGNESIUM
     Indication: Gastrooesophageal reflux disease
     Dosage: GENERIC
     Route: 065
     Dates: end: 2012
  4. NEXIUM [Suspect]
     Active Substance: ESOMEPRAZOLE MAGNESIUM
     Indication: Gastrooesophageal reflux disease
     Route: 048
     Dates: start: 20070622
  5. PRILOSEC [Suspect]
     Active Substance: OMEPRAZOLE MAGNESIUM
     Indication: Gastrooesophageal reflux disease
     Route: 048
     Dates: start: 200605, end: 200606
  6. PRILOSEC [Suspect]
     Active Substance: OMEPRAZOLE MAGNESIUM
     Indication: Gastrooesophageal reflux disease
     Route: 048
     Dates: start: 2015, end: 2016
  7. PRILOSEC [Suspect]
     Active Substance: OMEPRAZOLE MAGNESIUM
     Indication: Gastrooesophageal reflux disease
     Dosage: GENERIC
     Route: 065
     Dates: end: 2017
  8. PRILOSEC [Suspect]
     Active Substance: OMEPRAZOLE MAGNESIUM
     Indication: Gastrooesophageal reflux disease
     Dosage: GENERIC
     Route: 065
     Dates: start: 20161018
  9. PREVACID [Suspect]
     Active Substance: LANSOPRAZOLE
     Indication: Gastrooesophageal reflux disease
     Route: 065
     Dates: start: 200605, end: 200606
  10. PREVACID [Suspect]
     Active Substance: LANSOPRAZOLE
     Indication: Gastrooesophageal reflux disease
     Route: 065
     Dates: end: 2006
  11. PROTONIX [Suspect]
     Active Substance: PANTOPRAZOLE SODIUM
     Indication: Gastrooesophageal reflux disease
     Route: 065
     Dates: start: 200605, end: 200606
  12. PROTONIX [Suspect]
     Active Substance: PANTOPRAZOLE SODIUM
     Indication: Gastrooesophageal reflux disease
     Route: 065
     Dates: end: 2006
  13. PROTONIX [Suspect]
     Active Substance: PANTOPRAZOLE SODIUM
     Indication: Gastrooesophageal reflux disease
     Dosage: GENERIC
     Route: 065
     Dates: start: 2014, end: 2016
  14. PRAVASTATIN [Concomitant]
     Active Substance: PRAVASTATIN
     Indication: Low density lipoprotein abnormal
     Route: 065
     Dates: start: 2013, end: 2017
  15. FUROSEMIDE [Concomitant]
     Active Substance: FUROSEMIDE
     Indication: Oedema
     Route: 065
     Dates: start: 2013, end: 2017
  16. OXYCODONE [Concomitant]
     Active Substance: OXYCODONE
     Indication: Pain
     Route: 065
     Dates: start: 2013, end: 2017
  17. GABAPENTIN [Concomitant]
     Active Substance: GABAPENTIN
     Indication: Epilepsy
     Route: 065
     Dates: start: 2013, end: 2017
  18. SERTRALINE [Concomitant]
     Active Substance: SERTRALINE HYDROCHLORIDE
     Indication: Depression
     Route: 065
     Dates: start: 2007
  19. REQUIP [Concomitant]
     Active Substance: ROPINIROLE HYDROCHLORIDE
     Indication: Parkinson^s disease
     Route: 065
     Dates: start: 20070918
  20. AMLODIPINE [Concomitant]
     Active Substance: AMLODIPINE BESYLATE
     Route: 065
     Dates: start: 20170109
  21. CETIRIZINE HYDROCHLORIDE [Concomitant]
     Active Substance: CETIRIZINE HYDROCHLORIDE
     Route: 065
     Dates: start: 20170109
  22. FLUTICASONE [Concomitant]
     Active Substance: FLUTICASONE
  23. LATANOPROST [Concomitant]
     Active Substance: LATANOPROST
  24. TAMSULOSIN [Concomitant]
     Active Substance: TAMSULOSIN
     Route: 065
     Dates: start: 20161208
  25. LABETALOL [Concomitant]
     Active Substance: LABETALOL\LABETALOL HYDROCHLORIDE
  26. ISOSORBIDE [Concomitant]
     Active Substance: ISOSORBIDE
     Route: 065
     Dates: start: 20161121
  27. NASTURTIUM OFFICINALE/SODIUM SULFATE/MYOSOTIS ARVENSIS/GERANIUM ROBERT [Concomitant]
  28. DIPHENOXYLATE [Concomitant]
     Active Substance: DIPHENOXYLATE
  29. TIMOLOL/BRIMONIDINE/BIMATOPROST [Concomitant]
  30. CIPROFLOXACIN [Concomitant]
     Active Substance: CIPROFLOXACIN
  31. CEPHALEXIN [Concomitant]
     Active Substance: CEPHALEXIN
     Route: 065
     Dates: start: 20160726
  32. NITROFURANTOIN [Concomitant]
     Active Substance: NITROFURANTOIN
  33. HUMALOG [Concomitant]
     Active Substance: INSULIN LISPRO
  34. VENTOLIN [Concomitant]
     Active Substance: ALBUTEROL SULFATE
  35. CEFPODOXIME [Concomitant]
     Active Substance: CEFPODOXIME
  36. FERROUS SULFATE [Concomitant]
     Active Substance: FERROUS SULFATE
  37. DORZOLAMIDE [Concomitant]
     Active Substance: DORZOLAMIDE
  38. ALPHAGAN P [Concomitant]
     Active Substance: BRIMONIDINE TARTRATE
  39. PREDNISOLONE [Concomitant]
     Active Substance: PREDNISOLONE
  40. SIMVASTATIN [Concomitant]
     Active Substance: SIMVASTATIN
  41. LISINOPRIL [Concomitant]
     Active Substance: LISINOPRIL
  42. NIASPAN [Concomitant]
     Active Substance: NIACIN
  43. AVAPRO [Concomitant]
     Active Substance: IRBESARTAN
  44. TERBINAFINE [Concomitant]
     Active Substance: TERBINAFINE
     Route: 065
     Dates: start: 20080229
  45. METOPROLOL [Concomitant]
     Active Substance: METOPROLOL
  46. TRIAMTERENE [Concomitant]
     Active Substance: TRIAMTERENE
  47. ZETIA [Concomitant]
     Active Substance: EZETIMIBE
  48. CYANOCOBALAMIN [Concomitant]
     Active Substance: CYANOCOBALAMIN
  49. NITROGLYCERIN [Concomitant]
     Active Substance: NITROGLYCERIN
  50. CHOLINE/OXITRIPTAN/THEOBROMA CACAO/GLUTAMIC ACID/TRAZODONE/VITIS VINIF [Concomitant]
  51. CYCLOBENZAPRINE [Concomitant]
     Active Substance: CYCLOBENZAPRINE
  52. LIDOCAINE [Concomitant]
     Active Substance: LIDOCAINE
  53. LOSARTAN [Concomitant]
     Active Substance: LOSARTAN
  54. CLONIDINE [Concomitant]
     Active Substance: CLONIDINE
  55. TRAVATAN [Concomitant]
     Active Substance: TRAVOPROST
  56. HYDRALAZINE [Concomitant]
     Active Substance: HYDRALAZINE HYDROCHLORIDE
  57. MAGNESIUM OXIDE [Concomitant]
     Active Substance: MAGNESIUM OXIDE
  58. TRIAMCINOLONE [Concomitant]
     Active Substance: TRIAMCINOLONE
  59. ACIPHEX [Concomitant]
     Active Substance: RABEPRAZOLE SODIUM
  60. MIRAPEX [Concomitant]
     Active Substance: PRAMIPEXOLE DIHYDROCHLORIDE
  61. TOPROL XL [Concomitant]
     Active Substance: METOPROLOL SUCCINATE
  62. KLOR-CON [Concomitant]
     Active Substance: POTASSIUM CHLORIDE
  63. VYTORIN [Concomitant]
     Active Substance: EZETIMIBE\SIMVASTATIN
  64. TACROLIMUS [Concomitant]
     Active Substance: TACROLIMUS
  65. ISOSORBIDE MONONITRATE [Concomitant]
     Active Substance: ISOSORBIDE MONONITRATE
  66. SODIUM BICARBONATE [Concomitant]
     Active Substance: SODIUM BICARBONATE

REACTIONS (7)
  - End stage renal disease [Fatal]
  - Acute kidney injury [Unknown]
  - Chronic kidney disease [Unknown]
  - Renal failure [Unknown]
  - Nephrogenic anaemia [Unknown]
  - Chronic kidney disease-mineral and bone disorder [Unknown]
  - Renal tubular necrosis [Unknown]

NARRATIVE: CASE EVENT DATE: 20070419
